FAERS Safety Report 6283615-8 (Version None)
Quarter: 2009Q3

REPORT INFORMATION
  Report Type: 
  Country: None (occurrence: None)
  Receive Date: 20090724
  Receipt Date: 20090504
  Transmission Date: 20100115
  Serious: No
  Sender: FDA-Public Use
  Company Number: US-ALEXION-A200900374

PATIENT
  Sex: Female

DRUGS (17)
  1. SOLIRIS [Suspect]
     Indication: PAROXYSMAL NOCTURNAL HAEMOGLOBINURIA
     Dosage: 600 MG, UNK
     Route: 042
     Dates: start: 20070619
  2. SOLIRIS [Suspect]
     Dosage: 900 MG, Q2W
     Route: 042
  3. ENOXAPARIN SODIUM [Concomitant]
     Dosage: UNK
  4. ESTRADIOL [Concomitant]
     Dosage: UNK
  5. PROGESTERONE [Concomitant]
     Dosage: UNK
  6. LEVOTHYROXINE SODIUM [Concomitant]
     Dosage: UNK
  7. PREDNISONE TAB [Concomitant]
     Dosage: 5 MG, QOD
  8. TEMAZEPAM [Concomitant]
     Dosage: UNK
  9. EXJADE [Concomitant]
     Dosage: UNK
  10. AMITRIPTYLINE HCL [Concomitant]
     Dosage: UNK
  11. CALCITONIN [Concomitant]
     Dosage: UNK
  12. ACETYLSALICYLIC ACID [Concomitant]
     Dosage: UNK
  13. TYLENOL WITH CODEIN                /00154101/ [Concomitant]
     Dosage: UNK
  14. FOLIC ACID [Concomitant]
     Dosage: UNK
  15. DOCUSATE [Concomitant]
     Dosage: UNK
  16. CALCIUM [Concomitant]
     Dosage: UNK
  17. VITAMIN A [Concomitant]
     Dosage: UNK

REACTIONS (1)
  - VIRAL UPPER RESPIRATORY TRACT INFECTION [None]
